FAERS Safety Report 6942533-X (Version None)
Quarter: 2010Q3

REPORT INFORMATION
  Report Type: 
  Country: None (occurrence: None)
  Receive Date: 20100826
  Receipt Date: 20100715
  Transmission Date: 20110219
  Serious: Yes (Death, Other)
  Sender: FDA-Public Use
  Company Number: US-BAXTER-2010BH007683

PATIENT
  Age: 54 Year
  Sex: Female
  Weight: 90 kg

DRUGS (9)
  1. HEPARIN SODIUM INJECTION [Suspect]
     Indication: HAEMODIALYSIS
     Route: 042
     Dates: start: 20070801
  2. HEPARIN SODIUM INJECTION [Suspect]
     Route: 040
     Dates: start: 20070914, end: 20071109
  3. OXYCODONE HCL [Concomitant]
     Indication: PRODUCT USED FOR UNKNOWN INDICATION
     Route: 065
  4. PLAVIX [Concomitant]
     Indication: PRODUCT USED FOR UNKNOWN INDICATION
     Route: 065
  5. PREGABALIN [Concomitant]
     Indication: PRODUCT USED FOR UNKNOWN INDICATION
     Route: 065
  6. EPOGEN [Concomitant]
     Indication: PRODUCT USED FOR UNKNOWN INDICATION
     Route: 065
  7. VENOFER [Concomitant]
     Indication: PRODUCT USED FOR UNKNOWN INDICATION
     Route: 042
  8. VANCOMYCIN [Concomitant]
     Indication: PRODUCT USED FOR UNKNOWN INDICATION
     Route: 042
  9. ZEMPLAR [Concomitant]
     Indication: PRODUCT USED FOR UNKNOWN INDICATION
     Route: 065

REACTIONS (17)
  - ABDOMINAL PAIN [None]
  - ACUTE MYOCARDIAL INFARCTION [None]
  - ASTHENIA [None]
  - BURNING SENSATION [None]
  - CELLULITIS GANGRENOUS [None]
  - DIABETES MELLITUS [None]
  - DRY GANGRENE [None]
  - NEUROPATHY PERIPHERAL [None]
  - PERIPHERAL VASCULAR DISORDER [None]
  - PROCEDURAL HYPOTENSION [None]
  - PRURITUS [None]
  - PULSE ABSENT [None]
  - RESPIRATORY DISTRESS [None]
  - SEPSIS [None]
  - SKIN ULCER [None]
  - SOFT TISSUE NECROSIS [None]
  - UNRESPONSIVE TO STIMULI [None]
